FAERS Safety Report 16205245 (Version 2)
Quarter: 2019Q2

REPORT INFORMATION
  Report Type: Report from Study
  Country: US (occurrence: US)
  Receive Date: 20190416
  Receipt Date: 20190516
  Transmission Date: 20190711
  Serious: No
  Sender: FDA-Public Use
  Company Number: US-AMGEN-USASP2019057292

PATIENT
  Age: 55 Year
  Sex: Female

DRUGS (2)
  1. ENBREL [Suspect]
     Active Substance: ETANERCEPT
     Indication: RHEUMATOID ARTHRITIS
  2. ENBREL [Suspect]
     Active Substance: ETANERCEPT
     Indication: SLE ARTHRITIS
     Dosage: UNK
     Route: 065
     Dates: start: 2019, end: 2019

REACTIONS (5)
  - Injection site rash [Unknown]
  - Incorrect disposal of product [Unknown]
  - Injection site pruritus [Unknown]
  - Injection site erythema [Unknown]
  - Injection site mass [Unknown]

NARRATIVE: CASE EVENT DATE: 2019
